FAERS Safety Report 20974673 (Version 1)
Quarter: 2022Q2

REPORT INFORMATION
  Report Type: Spontaneous
  Country: US (occurrence: None)
  Receive Date: 20220616
  Receipt Date: 20220616
  Transmission Date: 20220721
  Serious: Yes (Disabling)
  Sender: FDA-Public Use
  Company Number: None

PATIENT
  Age: 44 Year
  Sex: Female
  Weight: 76.5 kg

DRUGS (18)
  1. REMICADE [Suspect]
     Active Substance: INFLIXIMAB
     Indication: Colitis ulcerative
     Dates: start: 20220412, end: 20220430
  2. LEVOTHYROXINE [Concomitant]
     Active Substance: LEVOTHYROXINE
  3. MESALAMINE [Concomitant]
     Active Substance: MESALAMINE
  4. PREDNISONE [Concomitant]
     Active Substance: PREDNISONE
  5. starting stelara on 6/17/22 [Concomitant]
  6. JWH-018 [Concomitant]
     Active Substance: JWH-018
  7. VITAMIN D3 [Concomitant]
     Active Substance: CHOLECALCIFEROL
  8. FOLATE SODIUM [Concomitant]
     Active Substance: FOLATE SODIUM
  9. HERBALS\TURMERIC [Concomitant]
     Active Substance: HERBALS\TURMERIC
  10. Centrum one a day [Concomitant]
  11. CANNABIDIOL\HERBALS [Concomitant]
     Active Substance: CANNABIDIOL\HERBALS
  12. ECHINACEA [Concomitant]
     Active Substance: ECHINACEA, UNSPECIFIED
  13. TEA [Concomitant]
     Active Substance: TEA LEAF
  14. calcium/magnesium/zinc [Concomitant]
  15. ZYRTEC [Concomitant]
     Active Substance: CETIRIZINE HYDROCHLORIDE
  16. LUTEIN [Concomitant]
     Active Substance: LUTEIN
  17. PROBIOTICS NOS [Concomitant]
     Active Substance: PROBIOTICS NOS
  18. FIBER [Concomitant]
     Active Substance: PSYLLIUM HUSK

REACTIONS (7)
  - Sensory disturbance [None]
  - Electric shock sensation [None]
  - Paraesthesia [None]
  - Paraesthesia [None]
  - Asthenia [None]
  - Neuropathy peripheral [None]
  - Grip strength decreased [None]

NARRATIVE: CASE EVENT DATE: 20220429
